FAERS Safety Report 24038593 (Version 1)
Quarter: 2024Q3

REPORT INFORMATION
  Report Type: Other
  Country: IR (occurrence: IR)
  Receive Date: 20240702
  Receipt Date: 20240702
  Transmission Date: 20241017
  Serious: Yes (Hospitalization, Other)
  Sender: BIONPHARMA
  Company Number: IR-Bion-013327

PATIENT
  Age: 66 Year
  Sex: Female

DRUGS (1)
  1. DICLOFENAC POTASSIUM [Suspect]
     Active Substance: DICLOFENAC POTASSIUM
     Indication: Arthralgia
     Dosage: 25MG

REACTIONS (3)
  - Acute kidney injury [Recovering/Resolving]
  - Intentional product misuse [Unknown]
  - Anuria [Recovering/Resolving]
